FAERS Safety Report 12543146 (Version 1)
Quarter: 2016Q3

REPORT INFORMATION
  Report Type: Spontaneous
  Country: DE (occurrence: DE)
  Receive Date: 20160711
  Receipt Date: 20160711
  Transmission Date: 20161109
  Serious: Yes (Hospitalization)
  Sender: FDA-Public Use
  Company Number: DE-009507513-1607DEU002014

PATIENT
  Age: 22 Year
  Sex: Female

DRUGS (2)
  1. REMERGIL [Suspect]
     Active Substance: MIRTAZAPINE
     Dosage: 15 MG/1 DAY
     Route: 048
     Dates: start: 20090811, end: 20090825
  2. REMERGIL [Suspect]
     Active Substance: MIRTAZAPINE
     Dosage: 30 MG/1 DAY
     Route: 048
     Dates: start: 20090825, end: 20090828

REACTIONS (4)
  - Tunnel vision [Recovered/Resolved]
  - Vision blurred [Recovered/Resolved]
  - Visual field tests abnormal [Recovered/Resolved]
  - Visual impairment [Recovered/Resolved]

NARRATIVE: CASE EVENT DATE: 20090828
